FAERS Safety Report 6689353-1 (Version None)
Quarter: 2010Q2

REPORT INFORMATION
  Report Type: 
  Country: None (occurrence: None)
  Receive Date: 20100419
  Receipt Date: 20100419
  Transmission Date: 20101027
  Serious: No
  Sender: FDA-Public Use
  Company Number: None

PATIENT
  Sex: Female
  Weight: 54 kg

DRUGS (2)
  1. VANCOMYCIN [Suspect]
     Indication: STAPHYLOCOCCAL INFECTION
     Dosage: 1G Q12H IV
     Route: 042
     Dates: start: 20100320, end: 20100419
  2. VANCOMYCIN [Suspect]

REACTIONS (3)
  - ERYTHEMA [None]
  - PRODUCT QUALITY ISSUE [None]
  - PRURITUS [None]
